FAERS Safety Report 7611855-1 (Version None)
Quarter: 2011Q3

REPORT INFORMATION
  Report Type: 
  Country: None (occurrence: None)
  Receive Date: 20110715
  Receipt Date: 20110709
  Transmission Date: 20111222
  Serious: Yes (Other)
  Sender: FDA-Public Use
  Company Number: US-US-EMD SERONO, INC.-7070088

PATIENT
  Sex: Female

DRUGS (2)
  1. REBIF [Suspect]
     Indication: PRODUCT USED FOR UNKNOWN INDICATION
     Route: 058
     Dates: start: 20100621, end: 20110301
  2. REBIF [Suspect]
     Route: 058
     Dates: start: 20110601

REACTIONS (3)
  - PELVIC ADHESIONS [None]
  - ARTERIAL OCCLUSIVE DISEASE [None]
  - CYST [None]
